FAERS Safety Report 20494302 (Version 1)
Quarter: 2022Q1

REPORT INFORMATION
  Report Type: Spontaneous
  Country: US (occurrence: US)
  Receive Date: 20220221
  Receipt Date: 20220221
  Transmission Date: 20220423
  Serious: No
  Sender: FDA-Public Use
  Company Number: US-SA-2021SA131826

PATIENT
  Age: 56 Year
  Sex: Female

DRUGS (2)
  1. DUPIXENT [Suspect]
     Active Substance: DUPILUMAB
     Indication: Product used for unknown indication
  2. DOXYCYCLINE [Concomitant]
     Active Substance: DOXYCYCLINE
     Indication: Rosacea

REACTIONS (2)
  - Rosacea [Unknown]
  - Injection site bruising [Unknown]

NARRATIVE: CASE EVENT DATE: 20220203
